FAERS Safety Report 14090767 (Version 2)
Quarter: 2017Q4

REPORT INFORMATION
  Report Type: Report from Study
  Country: IT (occurrence: IT)
  Receive Date: 20171015
  Receipt Date: 20171031
  Transmission Date: 20180321
  Serious: Yes (Other)
  Sender: FDA-Public Use
  Company Number: IT-CELGENEUS-ITA-20171003068

PATIENT
  Age: 69 Year

DRUGS (1)
  1. REVLIMID [Suspect]
     Active Substance: LENALIDOMIDE
     Indication: ACUTE MYELOID LEUKAEMIA
     Route: 048

REACTIONS (3)
  - Cardiovascular disorder [Unknown]
  - Liver disorder [Unknown]
  - Renal failure [Unknown]
